FAERS Safety Report 7624621-8 (Version None)
Quarter: 2011Q3

REPORT INFORMATION
  Report Type: 
  Country: None (occurrence: None)
  Receive Date: 20110720
  Receipt Date: 20110712
  Transmission Date: 20111222
  Serious: Yes (Hospitalization)
  Sender: FDA-Public Use
  Company Number: GB-PFIZER INC-2011152400

PATIENT
  Age: 12 Year
  Sex: Female

DRUGS (2)
  1. NORDITROPIN [Suspect]
  2. SOMATROPIN RDNA [Suspect]
     Dosage: NO DOSE GIVEN

REACTIONS (1)
  - TYPE 1 DIABETES MELLITUS [None]
